FAERS Safety Report 7830899-8 (Version None)
Quarter: 2011Q4

REPORT INFORMATION
  Report Type: 
  Country: None (occurrence: None)
  Receive Date: 20111021
  Receipt Date: 20111019
  Transmission Date: 20120403
  Serious: No
  Sender: FDA-Public Use
  Company Number: US-PFIZER INC-2011252471

PATIENT
  Sex: Male

DRUGS (4)
  1. NITROSTAT [Suspect]
     Indication: ANGINA PECTORIS
     Dosage: 0.4 MG, AS NEEDED
     Route: 060
     Dates: start: 20060101
  2. FUROSEMIDE [Concomitant]
     Dosage: UNK
  3. COUMADIN [Concomitant]
     Dosage: UNK
  4. NITROSTAT [Suspect]
     Indication: CHEST PAIN

REACTIONS (3)
  - PRODUCT SOLUBILITY ABNORMAL [None]
  - HYPERTENSION [None]
  - HYPERCHOLESTEROLAEMIA [None]
